FAERS Safety Report 6815041-4 (Version None)
Quarter: 2010Q2

REPORT INFORMATION
  Report Type: 
  Country: None (occurrence: None)
  Receive Date: 20100630
  Receipt Date: 20100630
  Transmission Date: 20101027
  Serious: Yes (Other)
  Sender: FDA-Public Use
  Company Number: None

PATIENT
  Age: 48 Year
  Sex: Female
  Weight: 56.246 kg

DRUGS (3)
  1. LEVAQUIN [Suspect]
     Indication: LOWER RESPIRATORY TRACT INFECTION
     Dosage: 500 MG 1XDAY FOR 10 DAYS MOUTH - (ONE DAY ONLY; WAS PRESCRIBED FOR 10 DAYS)
     Route: 048
     Dates: start: 20100428
  2. LEVOXYL [Concomitant]
  3. RESTASIS [Concomitant]

REACTIONS (8)
  - ACTIVITIES OF DAILY LIVING IMPAIRED [None]
  - DRY EYE [None]
  - DYSPHAGIA [None]
  - EYE PAIN [None]
  - MUSCLE SPASMS [None]
  - MUSCULOSKELETAL DISCOMFORT [None]
  - PAIN IN EXTREMITY [None]
  - TINNITUS [None]
